FAERS Safety Report 4659803-0 (Version None)
Quarter: 2005Q2

REPORT INFORMATION
  Report Type: 
  Country: None (occurrence: None)
  Receive Date: 20050510
  Receipt Date: 20050426
  Transmission Date: 20051028
  Serious: Yes (Hospitalization)
  Sender: FDA-Public Use
  Company Number: 2004IM000944

PATIENT
  Age: 62 Year
  Sex: Female
  Weight: 74.8435 kg

DRUGS (18)
  1. INTERFERON GAMMA-1B [Suspect]
     Indication: PULMONARY FIBROSIS
     Dosage: 200 UG, TIW, SUBCUTANEOUS
     Route: 058
     Dates: start: 20031202, end: 20041110
  2. INTERFERON GAMMA-1B [Suspect]
     Indication: PULMONARY FIBROSIS
     Dosage: 200 UG, TIW, SUBCUTANEOUS
     Route: 058
     Dates: start: 20041117, end: 20041210
  3. INTERFERON GAMMA-1B [Suspect]
     Indication: PULMONARY FIBROSIS
     Dosage: 200 UG, TIW, SUBCUTANEOUS
     Route: 058
     Dates: start: 20050110
  4. PREDNISONE TAB [Suspect]
     Dosage: 10 MG, QD, ORAL
     Route: 048
     Dates: start: 20010201
  5. LIPITOR [Concomitant]
  6. SYNTHROID [Concomitant]
  7. OMEPRAZOLE [Concomitant]
  8. PREMPRO (PREMARIN;CYCRIN 14/14) [Concomitant]
  9. ALLEGRA [Concomitant]
  10. ZETIA [Concomitant]
  11. MULTIVIT [Concomitant]
  12. CALCIUM WITH VITAMIN D [Concomitant]
  13. GLUCOSAMINE W/CHONDROITIN SULFATES [Concomitant]
  14. FISH OIL [Concomitant]
  15. VICODIN [Concomitant]
  16. CEPHALEXIN [Concomitant]
  17. CELEBREX [Concomitant]
  18. INDAPAMIDE [Concomitant]

REACTIONS (4)
  - IMMUNOSUPPRESSION [None]
  - IMPAIRED HEALING [None]
  - POST PROCEDURAL COMPLICATION [None]
  - POSTOPERATIVE INFECTION [None]
